FAERS Safety Report 16893321 (Version 1)
Quarter: 2019Q4

REPORT INFORMATION
  Report Type: Other
  Country: ES (occurrence: ES)
  Receive Date: 20191008
  Receipt Date: 20191008
  Transmission Date: 20200122
  Serious: Yes (Life-Threatening, Hospitalization, Other)
  Sender: FDA-Public Use
  Company Number: ES-DEXPHARM-20190858

PATIENT
  Age: 16 Year
  Sex: Male

DRUGS (11)
  1. IBUPROFEN. [Interacting]
     Active Substance: IBUPROFEN
     Indication: SUICIDAL IDEATION
  2. METFORMIN [Interacting]
     Active Substance: METFORMIN HYDROCHLORIDE
     Indication: SUICIDAL IDEATION
  3. NAPROXEN. [Interacting]
     Active Substance: NAPROXEN
     Indication: SUICIDAL IDEATION
  4. PARACETAMOL [Interacting]
     Active Substance: ACETAMINOPHEN
     Indication: SUICIDAL IDEATION
  5. VALSARTAN. [Interacting]
     Active Substance: VALSARTAN
     Indication: SUICIDAL IDEATION
  6. PREDNISONE. [Interacting]
     Active Substance: PREDNISONE
     Indication: SUICIDAL IDEATION
  7. DIAZEPAM. [Interacting]
     Active Substance: DIAZEPAM
     Indication: SUICIDAL IDEATION
  8. ROBAXISAL [Interacting]
     Active Substance: ASPIRIN\METHOCARBAMOL
     Indication: SUICIDAL IDEATION
  9. OMEPRAZOLE. [Suspect]
     Active Substance: OMEPRAZOLE
     Indication: SUICIDAL IDEATION
  10. VENLAFAXINE [Interacting]
     Active Substance: VENLAFAXINE HYDROCHLORIDE
     Indication: SUICIDAL IDEATION
  11. TRAMADOL. [Suspect]
     Active Substance: TRAMADOL
     Indication: SUICIDAL IDEATION

REACTIONS (2)
  - Renal failure [Recovering/Resolving]
  - Metabolic acidosis [Recovering/Resolving]
